FAERS Safety Report 15563487 (Version 2)
Quarter: 2018Q4

REPORT INFORMATION
  Report Type: Spontaneous
  Country: IT (occurrence: IT)
  Receive Date: 20181029
  Receipt Date: 20181031
  Transmission Date: 20190205
  Serious: Yes (Hospitalization)
  Sender: FDA-Public Use
  Company Number: PHHY2018IT137350

PATIENT
  Age: 27 Year
  Sex: Male

DRUGS (1)
  1. TEGRETOL [Suspect]
     Active Substance: CARBAMAZEPINE
     Indication: DRUG ABUSE
     Dosage: 6 DF (?G/L), TOTAL
     Route: 048
     Dates: start: 20180414, end: 20180414

REACTIONS (11)
  - Epilepsy [Recovered/Resolved]
  - Alanine aminotransferase increased [Recovered/Resolved]
  - Sopor [Recovered/Resolved]
  - Blood lactic acid increased [Recovered/Resolved]
  - Intentional overdose [Recovered/Resolved]
  - Vomiting [Recovered/Resolved]
  - Agitation [Recovered/Resolved]
  - Blood bilirubin abnormal [Recovered/Resolved]
  - Sinus tachycardia [Recovered/Resolved]
  - Blood potassium decreased [Recovered/Resolved]
  - Confusional state [Recovered/Resolved]

NARRATIVE: CASE EVENT DATE: 20180414
